FAERS Safety Report 5967833-1 (Version None)
Quarter: 2008Q4

REPORT INFORMATION
  Report Type: 
  Country: None (occurrence: None)
  Receive Date: 20081126
  Receipt Date: 20081124
  Transmission Date: 20090506
  Serious: Yes (Other)
  Sender: FDA-Public Use
  Company Number: AR-BRISTOL-MYERS SQUIBB COMPANY-14418198

PATIENT
  Sex: Female

DRUGS (1)
  1. ABATACEPT [Suspect]
     Dosage: INTERRUPTED, THEN RESTARTED
     Dates: start: 20080101

REACTIONS (2)
  - CELLULITIS [None]
  - DEEP VEIN THROMBOSIS [None]
